FAERS Safety Report 8251478-7 (Version None)
Quarter: 2012Q2

REPORT INFORMATION
  Report Type: 
  Country: None (occurrence: None)
  Receive Date: 20120402
  Receipt Date: 20120323
  Transmission Date: 20120825
  Serious: Yes (Hospitalization)
  Sender: FDA-Public Use
  Company Number: US-BAYER-2011-107548

PATIENT
  Age: 28 Year
  Sex: Female

DRUGS (9)
  1. FLUTICASONE PROPIONATE [Concomitant]
     Dosage: 50 MCG
     Dates: start: 20090211
  2. PREDNISOLONE [Concomitant]
     Dosage: 20 MCG
     Dates: start: 20090404
  3. SINGULAIR [Concomitant]
     Dosage: 10 MCG
     Dates: start: 20090404
  4. PROVENTIL [Concomitant]
     Dosage: 90 MCG
     Dates: start: 20090127
  5. QVAR 40 [Concomitant]
     Dosage: 80 MCG
     Dates: start: 20090211
  6. DROSPIRENONE AND ETHINYL ESTRADIOL [Suspect]
     Dosage: UNK
     Dates: start: 20080101, end: 20090416
  7. NORGESTIMATE AND ETHINYL ESTRADIOL [Concomitant]
  8. YASMIN [Suspect]
     Dosage: UNK
     Dates: start: 20080101, end: 20090416
  9. PROMETHAZINE - CODEINE [CODEINE PHOSPHATE,PROMETHAZINE HYDROCHLORI [Concomitant]
     Dosage: UNK
     Dates: start: 20090211

REACTIONS (5)
  - PULMONARY EMBOLISM [None]
  - EMOTIONAL DISTRESS [None]
  - INJURY [None]
  - DYSPNOEA [None]
  - CHEST PAIN [None]
